FAERS Safety Report 8684431 (Version 7)
Quarter: 2013Q3

REPORT INFORMATION
  Report Type: Spontaneous
  Country: US (occurrence: US)
  Receive Date: 20120726
  Receipt Date: 20130705
  Transmission Date: 20140515
  Serious: Yes (Hospitalization, Other)
  Sender: FDA-Public Use
  Company Number: US-009507513-1207USA007300

PATIENT
  Sex: Female

DRUGS (2)
  1. FOSAMAX [Suspect]
     Indication: OSTEOPENIA
     Dosage: 70 MG, QW
     Route: 048
     Dates: start: 199801, end: 200807
  2. ALENDRONATE SODIUM [Suspect]
     Indication: OSTEOPENIA
     Dosage: 70 MG, QW
     Route: 048
     Dates: start: 200808, end: 200811

REACTIONS (10)
  - Femur fracture [Unknown]
  - Open reduction of fracture [Unknown]
  - Knee arthroplasty [Unknown]
  - Device dislocation [Unknown]
  - Hip arthroplasty [Unknown]
  - Low turnover osteopathy [Unknown]
  - Knee operation [Unknown]
  - Fall [Unknown]
  - Urinary incontinence [Unknown]
  - Arthralgia [Unknown]
